FAERS Safety Report 4558666-1 (Version None)
Quarter: 2005Q1

REPORT INFORMATION
  Report Type: 
  Country: None (occurrence: None)
  Receive Date: 20050121
  Receipt Date: 20050121
  Transmission Date: 20050727
  Serious: Yes (Other)
  Sender: FDA-Public Use
  Company Number: None

PATIENT
  Age: 38 Year
  Sex: Male
  Weight: 97.5234 kg

DRUGS (1)
  1. SEPTRA DS [Suspect]
     Dosage: ONE PO QID
     Route: 048
     Dates: start: 20041222, end: 20050104

REACTIONS (1)
  - RASH MACULO-PAPULAR [None]
